FAERS Safety Report 5098495-6 (Version None)
Quarter: 2006Q3

REPORT INFORMATION
  Report Type: 
  Country: None (occurrence: None)
  Receive Date: 20060906
  Receipt Date: 20060203
  Transmission Date: 20061208
  Serious: No
  Sender: FDA-Public Use
  Company Number: US-GLAXOSMITHKLINE-A0592275A

PATIENT
  Age: 81 Year
  Sex: Male

DRUGS (9)
  1. REQUIP [Suspect]
     Indication: RESTLESS LEGS SYNDROME
     Route: 048
     Dates: start: 20050101
  2. PREVACID [Concomitant]
  3. ASPIRIN [Concomitant]
  4. PAXIL [Concomitant]
  5. NEURONTIN [Concomitant]
  6. TOPROL-XL [Concomitant]
  7. ZOCOR [Concomitant]
  8. DARVOCET [Concomitant]
  9. MIRALAX [Concomitant]

REACTIONS (1)
  - SOMNOLENCE [None]
